FAERS Safety Report 19284848 (Version 1)
Quarter: 2021Q2

REPORT INFORMATION
  Report Type: Spontaneous
  Country: US (occurrence: US)
  Receive Date: 20210521
  Receipt Date: 20210521
  Transmission Date: 20210717
  Serious: Yes (Death)
  Sender: FDA-Public Use
  Company Number: None

PATIENT
  Age: 68 Year
  Sex: Male
  Weight: 83 kg

DRUGS (1)
  1. BREYANZI [Suspect]
     Active Substance: LISOCABTAGENE MARALEUCEL
     Indication: DIFFUSE LARGE B-CELL LYMPHOMA REFRACTORY
     Route: 042
     Dates: start: 20210511, end: 20210511

REACTIONS (14)
  - Tachycardia [None]
  - Hypotension [None]
  - Bundle branch block right [None]
  - Blood creatinine increased [None]
  - Fatigue [None]
  - Dyspnoea [None]
  - Bradycardia [None]
  - Hyperkalaemia [None]
  - Pyrexia [None]
  - Cytokine release syndrome [None]
  - Cardiac arrest [None]
  - Ventricular tachycardia [None]
  - Hypoxia [None]
  - Dialysis [None]

NARRATIVE: CASE EVENT DATE: 20210516
